FAERS Safety Report 10157145 (Version 1)
Quarter: 2014Q2

REPORT INFORMATION
  Report Type: Spontaneous
  Country: US (occurrence: US)
  Receive Date: 20140507
  Receipt Date: 20140507
  Transmission Date: 20141212
  Serious: No
  Sender: FDA-Public Use
  Company Number: US-PFIZER INC-2014123601

PATIENT
  Age: 44 Year
  Sex: Female
  Weight: 64.85 kg

DRUGS (3)
  1. VENLAFAXINE HCL [Suspect]
     Indication: PANIC ATTACK
     Dosage: 75 MG, 1X/DAY
  2. VENLAFAXINE HCL [Suspect]
     Indication: ANXIETY
  3. GEMFIBROZIL [Concomitant]
     Indication: BLOOD CHOLESTEROL INCREASED
     Dosage: 500 MG, 2X/DAY

REACTIONS (2)
  - Urticaria [Recovered/Resolved]
  - Rash [Recovered/Resolved]
